FAERS Safety Report 7563822-4 (Version None)
Quarter: 2011Q2

REPORT INFORMATION
  Report Type: 
  Country: None (occurrence: None)
  Receive Date: 20110622
  Receipt Date: 20110613
  Transmission Date: 20111010
  Serious: Yes (Other)
  Sender: FDA-Public Use
  Company Number: US-PERRIGO-11US004924

PATIENT
  Age: 56 Year
  Sex: Female
  Weight: 76.19 kg

DRUGS (7)
  1. MINOXIDIL [Suspect]
     Indication: ALOPECIA
     Dosage: 1 ML, QD
     Route: 061
     Dates: start: 20110524, end: 20110612
  2. TRAZODONE HCL [Concomitant]
     Indication: INSOMNIA
     Dosage: UNK, QD AT BEDTIME
     Route: 048
  3. DEXLANSOPRAZOLE [Concomitant]
     Indication: GASTROOESOPHAGEAL REFLUX DISEASE
     Dosage: UNK
     Route: 048
  4. TRIAMTERENE [Concomitant]
     Indication: DIURETIC THERAPY
     Dosage: UNK, PRN
     Route: 048
  5. LEXAPRO [Concomitant]
     Indication: DEPRESSION
     Dosage: UNK, QD
     Route: 048
  6. CLORAZEPATE DIPOTASSIUM [Concomitant]
     Indication: ANXIETY
     Dosage: UNK, BID
     Route: 048
  7. METHOCARBAMOL [Concomitant]
     Indication: MUSCLE RELAXANT THERAPY
     Dosage: UNK
     Route: 048

REACTIONS (5)
  - APPLICATION SITE DRYNESS [None]
  - HAIR TEXTURE ABNORMAL [None]
  - UNDERDOSE [None]
  - BLOOD PRESSURE DECREASED [None]
  - EPISTAXIS [None]
